FAERS Safety Report 17761769 (Version 1)
Quarter: 2020Q2

REPORT INFORMATION
  Report Type: Spontaneous
  Country: RU (occurrence: RU)
  Receive Date: 20200508
  Receipt Date: 20200508
  Transmission Date: 20200714
  Serious: Yes (Other)
  Sender: FDA-Public Use
  Company Number: RU-SA-2020SA118499

PATIENT
  Age: 80 Year
  Sex: Male

DRUGS (7)
  1. ATORVASTATIN CALCIUM. [Concomitant]
     Active Substance: ATORVASTATIN CALCIUM
     Route: 065
  2. METFORMIN [Concomitant]
     Active Substance: METFORMIN HYDROCHLORIDE
     Route: 065
  3. OMNIC [Suspect]
     Active Substance: TAMSULOSIN HYDROCHLORIDE
     Indication: BENIGN PROSTATIC HYPERPLASIA
     Dosage: 0.4 MG, QD
     Route: 048
     Dates: start: 2017
  4. RENNIE [CALCIUM CARBONATE;MAGNESIUM CARBONATE] [Concomitant]
     Active Substance: CALCIUM CARBONATE\MAGNESIUM CARBONATE
     Route: 065
  5. GLYCINE. [Concomitant]
     Active Substance: GLYCINE
     Route: 065
  6. CORVALOL [ETHYL 2-BROMOISOVALERATE;MENTHA X PIPERITA OIL;PHENOBARBITAL [Concomitant]
     Route: 065
  7. FESTAL [Concomitant]
     Route: 065

REACTIONS (2)
  - Dry mouth [Not Recovered/Not Resolved]
  - Cardiac disorder [Not Recovered/Not Resolved]

NARRATIVE: CASE EVENT DATE: 202004
